FAERS Safety Report 25875680 (Version 1)
Quarter: 2025Q4

REPORT INFORMATION
  Report Type: Spontaneous
  Country: GB (occurrence: GB)
  Receive Date: 20251003
  Receipt Date: 20251003
  Transmission Date: 20260118
  Serious: Yes (Death)
  Sender: CELLTRION
  Company Number: GB-CELLTRION INC.-2025GB035045

PATIENT

DRUGS (2)
  1. YUFLYMA [Suspect]
     Active Substance: ADALIMUMAB-AATY
     Indication: Rheumatoid arthritis
     Dosage: 40MG FOR INJECTION PENS INJECT ONE PRE-FILLED PEN EVERY TWO WEEKS
     Route: 058
  2. YUFLYMA [Suspect]
     Active Substance: ADALIMUMAB-AATY

REACTIONS (1)
  - Death [Fatal]
